FAERS Safety Report 18529120 (Version 1)
Quarter: 2020Q4

REPORT INFORMATION
  Report Type: Spontaneous
  Country: TR (occurrence: TR)
  Receive Date: 20201120
  Receipt Date: 20201120
  Transmission Date: 20210114
  Serious: Yes (Other)
  Sender: FDA-Public Use
  Company Number: TR-ELI_LILLY_AND_COMPANY-TR202011004894

PATIENT
  Age: 9 Year
  Sex: Male

DRUGS (1)
  1. PROZAC [Suspect]
     Active Substance: FLUOXETINE HYDROCHLORIDE
     Indication: DEPRESSION
     Dosage: UNK UNK, UNKNOWN
     Route: 048

REACTIONS (14)
  - Disturbance in attention [Unknown]
  - Dizziness [Unknown]
  - Tension [Unknown]
  - Chills [Unknown]
  - Hallucination [Unknown]
  - Flushing [Unknown]
  - Oesophageal pain [Unknown]
  - Weight decreased [Unknown]
  - Sleep disorder [Unknown]
  - Heart rate irregular [Unknown]
  - Fatigue [Unknown]
  - Restlessness [Unknown]
  - Confusional state [Unknown]
  - Tremor [Unknown]
